FAERS Safety Report 6503120-0 (Version None)
Quarter: 2009Q4

REPORT INFORMATION
  Report Type: 
  Country: None (occurrence: None)
  Receive Date: 20091217
  Receipt Date: 20091209
  Transmission Date: 20100525
  Serious: Yes (Death)
  Sender: FDA-Public Use
  Company Number: FR-SANOFI-AVENTIS-2009SA007678

PATIENT
  Age: 70 Year
  Sex: Female

DRUGS (7)
  1. CORDARONE [Suspect]
     Route: 048
     Dates: end: 20091021
  2. DEPAMIDE [Suspect]
     Indication: DRUG USE FOR UNKNOWN INDICATION
     Route: 048
     Dates: end: 20091021
  3. LASILIX [Suspect]
     Route: 048
     Dates: end: 20091001
  4. RISPERDAL [Suspect]
     Indication: DRUG USE FOR UNKNOWN INDICATION
     Dates: end: 20091021
  5. VENTOLIN [Suspect]
     Indication: ASTHMA
     Route: 055
  6. ENOXAPARIN [Concomitant]
     Indication: PROPHYLAXIS
     Dates: start: 20091001
  7. POTASSIUM CHLORIDE [Concomitant]
     Dates: start: 20091001

REACTIONS (1)
  - SUDDEN DEATH [None]
